FAERS Safety Report 9369885 (Version 1)
Quarter: 2013Q2

REPORT INFORMATION
  Report Type: Spontaneous
  Country: BR (occurrence: BR)
  Receive Date: 20130626
  Receipt Date: 20130626
  Transmission Date: 20140414
  Serious: Yes (Other)
  Sender: FDA-Public Use
  Company Number: BR-PFIZER INC-2013188410

PATIENT
  Age: 72 Year
  Sex: Male

DRUGS (2)
  1. LYRICA [Suspect]
     Dosage: 75 MG, 2X/DAY
     Route: 048
     Dates: start: 20120712
  2. LIPITOR [Suspect]
     Dosage: 80 MG, 2X/DAY
     Route: 048
     Dates: start: 20121115

REACTIONS (1)
  - Wheelchair user [Not Recovered/Not Resolved]
